FAERS Safety Report 7550860-0 (Version None)
Quarter: 2011Q2

REPORT INFORMATION
  Report Type: 
  Country: None (occurrence: None)
  Receive Date: 20110616
  Receipt Date: 20110613
  Transmission Date: 20111010
  Serious: No
  Sender: FDA-Public Use
  Company Number: US-PFIZER INC-2011130104

PATIENT
  Sex: Female

DRUGS (3)
  1. ADVIL LIQUI-GELS [Concomitant]
     Dosage: UNK
  2. PERCOCET [Suspect]
     Indication: PAIN
     Dosage: UNK
  3. CELEBREX [Suspect]
     Indication: PAIN
     Dosage: UNK

REACTIONS (1)
  - DRUG INEFFECTIVE [None]
